FAERS Safety Report 5731411-X (Version None)
Quarter: 2008Q2

REPORT INFORMATION
  Report Type: 
  Country: None (occurrence: None)
  Receive Date: 20080508
  Receipt Date: 20080430
  Transmission Date: 20081010
  Serious: Yes (Hospitalization, Other)
  Sender: FDA-Public Use
  Company Number: PHBS2008JP04102

PATIENT
  Age: 28 Year
  Sex: Female

DRUGS (7)
  1. METHERGINE [Suspect]
     Dosage: 0.2 MG
     Route: 042
  2. OXYTOCIN [Suspect]
     Dosage: 5 UNITS
     Route: 030
  3. LIDOCAINE [Concomitant]
     Indication: ANAESTHESIA
  4. BUPIVACAINE [Concomitant]
     Indication: ANAESTHESIA
  5. DIAZEPAM [Concomitant]
     Indication: SEDATIVE THERAPY
     Dosage: 2.5 MG
     Route: 042
  6. FUROSEMIDE [Concomitant]
     Dosage: 10 MG
     Route: 042
  7. ROPIVACAINE [Concomitant]
     Dosage: 0.2 %  3 ML/H
     Route: 008

REACTIONS (24)
  - ACIDOSIS [None]
  - ACUTE RESPIRATORY DISTRESS SYNDROME [None]
  - BLOOD BICARBONATE DECREASED [None]
  - BLOOD PH DECREASED [None]
  - CARDIAC FAILURE [None]
  - CARDIAC FUNCTION TEST ABNORMAL [None]
  - CARDIAC OUTPUT INCREASED [None]
  - CENTRAL VENOUS PRESSURE INCREASED [None]
  - CHEST X-RAY ABNORMAL [None]
  - DYSPNOEA [None]
  - ECHOCARDIOGRAM [None]
  - EJECTION FRACTION DECREASED [None]
  - ENDOTRACHEAL INTUBATION [None]
  - HEART RATE INCREASED [None]
  - MITRAL VALVE INCOMPETENCE [None]
  - OXYGEN SATURATION DECREASED [None]
  - OXYGEN SUPPLEMENTATION [None]
  - PCO2 DECREASED [None]
  - PERIPARTUM CARDIOMYOPATHY [None]
  - PO2 DECREASED [None]
  - PULMONARY OEDEMA [None]
  - PULMONARY VASCULAR RESISTANCE ABNORMALITY [None]
  - URINE OUTPUT DECREASED [None]
  - VENTRICULAR HYPOKINESIA [None]
